FAERS Safety Report 16366106 (Version 1)
Quarter: 2019Q2

REPORT INFORMATION
  Report Type: Spontaneous
  Country: FR (occurrence: FR)
  Receive Date: 20190529
  Receipt Date: 20190529
  Transmission Date: 20190711
  Serious: Yes (Hospitalization)
  Sender: FDA-Public Use
  Company Number: FR-JNJFOC-20190537212

PATIENT
  Age: 93 Year
  Sex: Female
  Weight: 52.8 kg

DRUGS (2)
  1. IXPRIM [Suspect]
     Active Substance: ACETAMINOPHEN\TRAMADOL HYDROCHLORIDE
     Indication: PAIN
     Route: 048
     Dates: end: 201904
  2. BROMAZEPAM [Suspect]
     Active Substance: BROMAZEPAM
     Indication: PRODUCT USED FOR UNKNOWN INDICATION
     Route: 048
     Dates: end: 20190412

REACTIONS (3)
  - Dysarthria [Recovered/Resolved]
  - Confusional state [Recovered/Resolved]
  - Hallucination, visual [Recovered/Resolved]
